FAERS Safety Report 18405628 (Version 1)
Quarter: 2020Q4

REPORT INFORMATION
  Report Type: Spontaneous
  Country: IT (occurrence: IT)
  Receive Date: 20201020
  Receipt Date: 20201020
  Transmission Date: 20210114
  Serious: Yes (Other)
  Sender: FDA-Public Use
  Company Number: IT-NOVOPROD-759639

PATIENT
  Age: 56 Year
  Sex: Female

DRUGS (7)
  1. ATORVASTATIN [Concomitant]
     Active Substance: ATORVASTATIN
     Indication: DYSLIPIDAEMIA
     Dosage: 20 MG
     Route: 048
  2. TRESIBA [Suspect]
     Active Substance: INSULIN DEGLUDEC
     Indication: DIABETES MELLITUS
     Dosage: 8 KIU, QD
     Route: 058
  3. NITRODERM [Concomitant]
     Active Substance: NITROGLYCERIN
     Indication: ANGINA PECTORIS
     Dosage: NITRODERM TTS 10 MG / DIE TRANSDERMAL PATCH
     Route: 062
  4. DARBEPOETIN ALFA [Concomitant]
     Active Substance: DARBEPOETIN ALFA
     Indication: ANAEMIA
     Dosage: UNK
     Route: 058
  5. CARDICOR [Concomitant]
     Active Substance: BISOPROLOL
     Indication: CARDIAC FAILURE
     Dosage: 1.25 MG
     Route: 048
  6. HUMALOG [Suspect]
     Active Substance: INSULIN LISPRO
     Indication: DIABETES MELLITUS
     Dosage: 9 KIU, QD
     Route: 058
  7. RENVELA [Concomitant]
     Active Substance: SEVELAMER CARBONATE
     Indication: HYPERPHOSPHATASAEMIA
     Dosage: UNK
     Route: 048

REACTIONS (1)
  - Sopor [Recovering/Resolving]

NARRATIVE: CASE EVENT DATE: 20200803
